FAERS Safety Report 25663469 (Version 1)
Quarter: 2025Q3

REPORT INFORMATION
  Report Type: Spontaneous
  Country: GB (occurrence: GB)
  Receive Date: 20250811
  Receipt Date: 20250811
  Transmission Date: 20251021
  Serious: Yes (Disabling)
  Sender: IDORSIA PHARMACEUTICALS
  Company Number: GB-MHRA-TPP11724133C941804YC1754461810037

PATIENT
  Age: 52 Year
  Sex: Female
  Weight: 80 kg

DRUGS (10)
  1. QUVIVIQ [Suspect]
     Active Substance: DARIDOREXANT
     Indication: Ill-defined disorder
     Dosage: 25 MG, QD
     Route: 065
     Dates: start: 20250731
  2. CODEINE PHOSPHATE [Concomitant]
     Active Substance: CODEINE PHOSPHATE
     Indication: Ill-defined disorder
     Dates: start: 20250606
  3. MONTELUKAST [Concomitant]
     Active Substance: MONTELUKAST
     Indication: Ill-defined disorder
     Dosage: 1 DOSAGE FORM, QD
     Dates: start: 20250527
  4. PROGESTERONE [Concomitant]
     Active Substance: PROGESTERONE
     Indication: Ill-defined disorder
     Dosage: 1 UNK, QD
     Dates: start: 20250730
  5. ESTRADIOL [Concomitant]
     Active Substance: ESTRADIOL
     Indication: Ill-defined disorder
     Dosage: UNK UNK, BID
     Dates: start: 20250721
  6. ZOPICLONE [Concomitant]
     Active Substance: ZOPICLONE
     Indication: Ill-defined disorder
     Dates: start: 20250317
  7. ESTRADIOL [Concomitant]
     Active Substance: ESTRADIOL
     Indication: Ill-defined disorder
     Dates: start: 20250730
  8. ACYCLOVIR [Concomitant]
     Active Substance: ACYCLOVIR
     Indication: Ill-defined disorder
     Dosage: 1 DOSAGE FORM, BID
     Dates: start: 20240307
  9. LEVOTHYROXINE [Concomitant]
     Active Substance: LEVOTHYROXINE
     Indication: Ill-defined disorder
     Dosage: 75 UG, QD
     Dates: start: 20240307
  10. ARMOUR THYROID [Concomitant]
     Active Substance: THYROID, PORCINE
     Indication: Ill-defined disorder
     Dates: start: 20250310

REACTIONS (3)
  - Malaise [Recovered/Resolved]
  - Agitation [Recovered/Resolved]
  - Insomnia [Recovered/Resolved]

NARRATIVE: CASE EVENT DATE: 20250805
